FAERS Safety Report 5302021-3 (Version None)
Quarter: 2007Q2

REPORT INFORMATION
  Report Type: 
  Country: None (occurrence: None)
  Receive Date: 20070412
  Receipt Date: 20070328
  Transmission Date: 20071010
  Serious: Yes (Death)
  Sender: FDA-Public Use
  Company Number: 2007BM000044

PATIENT
  Age: 86 Year
  Sex: Male
  Weight: 56 kg

DRUGS (2)
  1. PREDNISOLONE [Suspect]
     Indication: DERMATOMYOSITIS
     Dosage: 30 MG; QD; PO
     Route: 048
     Dates: end: 20040502
  2. ORAPRED [Suspect]

REACTIONS (5)
  - DERMATOMYOSITIS [None]
  - INTERSTITIAL LUNG DISEASE [None]
  - LUNG NEOPLASM MALIGNANT [None]
  - PHOTODERMATOSIS [None]
  - RESPIRATORY FAILURE [None]
